FAERS Safety Report 15620604 (Version 1)
Quarter: 2018Q4

REPORT INFORMATION
  Report Type: Spontaneous
  Country: IE (occurrence: IE)
  Receive Date: 20181115
  Receipt Date: 20181115
  Transmission Date: 20190205
  Serious: Yes (Other)
  Sender: FDA-Public Use
  Company Number: IE-UCBSA-2018050293

PATIENT
  Age: 32 Year

DRUGS (1)
  1. KEPPRA [Suspect]
     Active Substance: LEVETIRACETAM
     Indication: PRODUCT USED FOR UNKNOWN INDICATION
     Dosage: UNK

REACTIONS (7)
  - Face injury [Unknown]
  - Seizure [Unknown]
  - Drug ineffective [Unknown]
  - Injury [Unknown]
  - Thermal burn [Unknown]
  - Chemical burn [Unknown]
  - Generalised tonic-clonic seizure [Unknown]
